FAERS Safety Report 12207092 (Version 1)
Quarter: 2016Q1

REPORT INFORMATION
  Report Type: Spontaneous
  Country: US (occurrence: None)
  Receive Date: 20160323
  Receipt Date: 20160323
  Transmission Date: 20160526
  Serious: No
  Sender: FDA-Public Use
  Company Number: None

PATIENT
  Age: 72 Year
  Sex: Female
  Weight: 56.25 kg

DRUGS (2)
  1. DULOXETINE HCL DR 30 MG CAPSULE [Suspect]
     Active Substance: DULOXETINE HYDROCHLORIDE
     Indication: PAIN IN EXTREMITY
     Dates: start: 20160122, end: 20160218
  2. OVER COUNTER MOTION SICKNESS [Concomitant]
     Indication: PAIN IN EXTREMITY

REACTIONS (3)
  - Nausea [None]
  - Faeces hard [None]
  - Faeces discoloured [None]

NARRATIVE: CASE EVENT DATE: 20160218
